FAERS Safety Report 17790653 (Version 1)
Quarter: 2020Q2

REPORT INFORMATION
  Report Type: Spontaneous
  Country: US (occurrence: US)
  Receive Date: 20200515
  Receipt Date: 20200515
  Transmission Date: 20200714
  Serious: No
  Sender: FDA-Public Use
  Company Number: US-SANOFI-AVENTIS-2011SA051111

PATIENT
  Sex: Female

DRUGS (1)
  1. MULTAQ [Suspect]
     Active Substance: DRONEDARONE
     Dosage: 400 MG,UNK
     Route: 048

REACTIONS (4)
  - Weight increased [Unknown]
  - Psoriasis [Unknown]
  - Hypoacusis [Unknown]
  - Visual impairment [Unknown]
